FAERS Safety Report 11326060 (Version 1)
Quarter: 2015Q3

REPORT INFORMATION
  Report Type: Spontaneous
  Country: US (occurrence: US)
  Receive Date: 20150731
  Receipt Date: 20150731
  Transmission Date: 20151125
  Serious: Yes (Death, Hospitalization, Other)
  Sender: FDA-Public Use
  Company Number: US-TAKEDA-2015MPI004979

PATIENT
  Age: 67 Year
  Sex: Male

DRUGS (3)
  1. VELCADE [Suspect]
     Active Substance: BORTEZOMIB
     Indication: PLASMA CELL MYELOMA
     Dosage: UNK
     Route: 058
  2. ZOMETA [Concomitant]
     Active Substance: ZOLEDRONIC ACID
     Route: 065
  3. ARANESP [Concomitant]
     Active Substance: DARBEPOETIN ALFA
     Route: 065

REACTIONS (3)
  - Hypercalcaemia [Unknown]
  - Blood pressure increased [Unknown]
  - Death [Fatal]
